FAERS Safety Report 23338942 (Version 1)
Quarter: 2023Q4

REPORT INFORMATION
  Report Type: Spontaneous
  Country: US (occurrence: US)
  Receive Date: 20231226
  Receipt Date: 20231226
  Transmission Date: 20240110
  Serious: No
  Sender: FDA-Public Use
  Company Number: US-BAYER-2023A184356

PATIENT
  Age: 17 Year
  Sex: Male

DRUGS (1)
  1. GADAVIST [Suspect]
     Active Substance: GADOBUTROL
     Indication: Magnetic resonance imaging abdominal
     Dosage: ONCE

REACTIONS (2)
  - Paraesthesia [None]
  - Urticaria [None]
